FAERS Safety Report 15450026 (Version 1)
Quarter: 2018Q3

REPORT INFORMATION
  Report Type: Spontaneous
  Country: US (occurrence: US)
  Receive Date: 20180926
  Receipt Date: 20180926
  Transmission Date: 20181010
  Serious: No
  Sender: FDA-Public Use
  Company Number: None

PATIENT
  Age: 60 Year

DRUGS (4)
  1. LISINOPRIL. [Concomitant]
     Active Substance: LISINOPRIL
  2. ETODOLAC. [Concomitant]
     Active Substance: ETODOLAC
  3. ATORVASTATIN [Concomitant]
     Active Substance: ATORVASTATIN
  4. COPAXONE [Suspect]
     Active Substance: GLATIRAMER ACETATE
     Dates: start: 201807

REACTIONS (3)
  - Fall [None]
  - Balance disorder [None]
  - Contusion [None]

NARRATIVE: CASE EVENT DATE: 20180701
